FAERS Safety Report 4652316-1 (Version None)
Quarter: 2005Q2

REPORT INFORMATION
  Report Type: 
  Country: None (occurrence: None)
  Receive Date: 20050504
  Receipt Date: 20050502
  Transmission Date: 20051028
  Serious: Yes (Hospitalization)
  Sender: FDA-Public Use
  Company Number: 147

PATIENT
  Age: 61 Year
  Sex: Male

DRUGS (11)
  1. MELPHALAN [Suspect]
     Indication: MULTIPLE MYELOMA
     Dosage: 370MG SINGLE DOSE
     Route: 042
     Dates: start: 20041123, end: 20041123
  2. THALIDOMIDE [Suspect]
     Indication: MULTIPLE MYELOMA
     Route: 048
     Dates: start: 20041009, end: 20041102
  3. DEXAMETHASONE [Suspect]
     Indication: MULTIPLE MYELOMA
     Dates: start: 20041009, end: 20041102
  4. VELCADE [Suspect]
     Indication: MULTIPLE MYELOMA
     Dates: start: 20040806, end: 20040809
  5. TESTOSTERONE [Concomitant]
  6. BROMOCRIPTINE [Concomitant]
  7. LEVOTHYROXINE SODIUM [Concomitant]
  8. HYDROCORTISONE [Concomitant]
  9. ACYCLOVIR [Concomitant]
  10. COUMADIN [Concomitant]
  11. ZOLOFT [Concomitant]

REACTIONS (3)
  - NAUSEA [None]
  - PYREXIA [None]
  - VOMITING [None]
